FAERS Safety Report 8828889 (Version 1)
Quarter: 2012Q4

REPORT INFORMATION
  Report Type: 
  Country: US (occurrence: US)
  Receive Date: 20121008
  Receipt Date: 20121008
  Transmission Date: 20130627
  Serious: No
  Sender: FDA-Public Use
  Company Number: US-009507513-1210USA003080

PATIENT
  Sex: Female

DRUGS (5)
  1. MIRALAX [Suspect]
     Indication: PRODUCT USED FOR UNKNOWN INDICATION
     Dosage: UNK, qd
     Route: 048
     Dates: start: 20120925
  2. MIRALAX [Suspect]
     Indication: MEDICAL OBSERVATION
     Dosage: UNK, Once
     Route: 048
     Dates: start: 20121001
  3. CARBIDOPA (+) LEVODOPA [Concomitant]
  4. EFFEXOR [Concomitant]
  5. ATENENOL [Concomitant]

REACTIONS (1)
  - Feeling jittery [Unknown]
